FAERS Safety Report 10705729 (Version 4)
Quarter: 2015Q3

REPORT INFORMATION
  Report Type: Spontaneous
  Country: US (occurrence: US)
  Receive Date: 20150112
  Receipt Date: 20150710
  Transmission Date: 20151125
  Serious: Yes (Hospitalization, Other)
  Sender: FDA-Public Use
  Company Number: US-GLAXOSMITHKLINE INC.-US2015GSK000656

PATIENT
  Sex: Male

DRUGS (2)
  1. ADVAIR HFA [Suspect]
     Active Substance: FLUTICASONE PROPIONATE\SALMETEROL XINAFOATE
     Indication: CHRONIC OBSTRUCTIVE PULMONARY DISEASE
     Dosage: UNK, U
     Route: 065
  2. ADVAIR HFA [Suspect]
     Active Substance: FLUTICASONE PROPIONATE\SALMETEROL XINAFOATE
     Dosage: UNK, U
     Route: 065
     Dates: start: 201312

REACTIONS (11)
  - Pneumonia [Unknown]
  - Lower respiratory tract infection [Unknown]
  - Hospitalisation [Recovered/Resolved]
  - Renal failure [Unknown]
  - Apparent death [Recovered/Resolved]
  - Rehabilitation therapy [Unknown]
  - Chronic obstructive pulmonary disease [Unknown]
  - Lung disorder [Unknown]
  - Accidental overdose [Unknown]
  - Respiratory arrest [Unknown]
  - Renal impairment [Unknown]

NARRATIVE: CASE EVENT DATE: 2014
